FAERS Safety Report 9251192 (Version 3)
Quarter: 2014Q1

REPORT INFORMATION
  Report Type: Spontaneous
  Country: US (occurrence: US)
  Receive Date: 20130424
  Receipt Date: 20140311
  Transmission Date: 20141002
  Serious: Yes (Hospitalization)
  Sender: FDA-Public Use
  Company Number: US-ASTRAZENECA-2013SE27322

PATIENT
  Age: 44 Year
  Sex: Female
  Weight: 63.5 kg

DRUGS (12)
  1. ZANTAC [Concomitant]
     Dosage: AS NEEDED
  2. PEPCID [Concomitant]
     Dosage: AS NEEDED
  3. ROLAIDS [Concomitant]
     Dosage: AS NEEDED
     Dates: start: 2013
  4. TUMS [Concomitant]
     Indication: DYSPEPSIA
     Dosage: AS NEEDED
     Dates: start: 2013
  5. NASONEX [Concomitant]
  6. PANLOR [Concomitant]
  7. TRAMADOL [Concomitant]
  8. NEXIUM [Suspect]
     Indication: GASTROOESOPHAGEAL REFLUX DISEASE
     Route: 048
     Dates: start: 2000, end: 2011
  9. NEXIUM [Suspect]
     Indication: GASTROOESOPHAGEAL REFLUX DISEASE
     Route: 048
     Dates: start: 20050225
  10. PROTONIX [Concomitant]
     Indication: GASTROOESOPHAGEAL REFLUX DISEASE
     Dates: start: 2003, end: 2004
  11. PREVACID [Concomitant]
     Indication: GASTROOESOPHAGEAL REFLUX DISEASE
     Dates: start: 2003, end: 2004
  12. ACIPHEX [Concomitant]
     Indication: GASTROOESOPHAGEAL REFLUX DISEASE
     Dates: start: 2006

REACTIONS (5)
  - Foot fracture [Unknown]
  - Musculoskeletal discomfort [Unknown]
  - Osteoporosis [Unknown]
  - Bone disorder [Unknown]
  - Osteopenia [Unknown]
